FAERS Safety Report 24234402 (Version 1)
Quarter: 2024Q3

REPORT INFORMATION
  Report Type: Spontaneous
  Country: US (occurrence: None)
  Receive Date: 20240820
  Receipt Date: 20240820
  Transmission Date: 20241017
  Serious: Yes (Other)
  Sender: Public
  Company Number: None

PATIENT
  Age: 65 Year
  Sex: Female
  Weight: 78.75 kg

DRUGS (7)
  1. RYBELSUS [Suspect]
     Active Substance: SEMAGLUTIDE
     Indication: Type 2 diabetes mellitus
     Dosage: OTHER QUANTITY : 1 TABLET(S);?FREQUENCY : DAILY;?
     Route: 048
     Dates: start: 20240612, end: 20240819
  2. RYBELSUS [Suspect]
     Active Substance: SEMAGLUTIDE
     Indication: Obesity
  3. LEVOTHYROXINE [Concomitant]
     Active Substance: LEVOTHYROXINE\LEVOTHYROXINE SODIUM
  4. Victoza Liriglutide [Concomitant]
  5. METFORMIN HYDROCHLORIDE [Concomitant]
     Active Substance: METFORMIN HYDROCHLORIDE
  6. Freestyle Lite^ manual glucose monitor [Concomitant]
  7. Goley Apple Cider Vinegar Gummies [Concomitant]

REACTIONS (7)
  - Nausea [None]
  - Abdominal distension [None]
  - Flatulence [None]
  - Eructation [None]
  - Constipation [None]
  - Vomiting projectile [None]
  - Dyspepsia [None]

NARRATIVE: CASE EVENT DATE: 20240818
